FAERS Safety Report 8090684-1 (Version None)
Quarter: 2012Q1

REPORT INFORMATION
  Report Type: 
  Country: None (occurrence: None)
  Receive Date: 20120129
  Receipt Date: 20111207
  Transmission Date: 20120608
  Serious: No
  Sender: FDA-Public Use
  Company Number: US-ABBOTT-11P-163-0881966-00

PATIENT
  Age: 55 Year
  Sex: Male

DRUGS (10)
  1. FOLIC ACID [Concomitant]
     Indication: PRODUCT USED FOR UNKNOWN INDICATION
  2. TRAMADOL HCL [Concomitant]
     Indication: PAIN
  3. HUMIRA [Suspect]
     Indication: RHEUMATOID ARTHRITIS
     Dosage: INITIAL DOSE
     Dates: start: 20111128
  4. METHOTREXATE [Concomitant]
     Indication: PRODUCT USED FOR UNKNOWN INDICATION
     Dosage: WEEKLY
  5. AMBIEN [Concomitant]
     Indication: INSOMNIA
     Dosage: ONE TO TWO TABLETS DAILY
  6. CELEBREX [Concomitant]
     Indication: RHEUMATOID ARTHRITIS
  7. DOXAZOSIN [Concomitant]
     Indication: HYPERTENSION
     Dosage: 6 MG DAILY
  8. AMLODIPINE [Concomitant]
     Indication: HYPERTENSION
  9. LISINOPRIL [Concomitant]
     Indication: HYPERTENSION
  10. VITAMIN TAB [Concomitant]
     Indication: PRODUCT USED FOR UNKNOWN INDICATION
     Dosage: DAILY

REACTIONS (4)
  - NASAL CONGESTION [None]
  - NAUSEA [None]
  - DIZZINESS [None]
  - COUGH [None]
